FAERS Safety Report 23325380 (Version 1)
Quarter: 2023Q4

REPORT INFORMATION
  Report Type: Spontaneous
  Country: SE (occurrence: SE)
  Receive Date: 20231221
  Receipt Date: 20231221
  Transmission Date: 20240109
  Serious: Yes (Disabling)
  Sender: FDA-Public Use
  Company Number: None

PATIENT
  Age: 77 Year
  Sex: Female
  Weight: 78 kg

DRUGS (1)
  1. JARDIANCE [Suspect]
     Active Substance: EMPAGLIFLOZIN
     Indication: Type 2 diabetes mellitus
     Route: 048
     Dates: start: 20220918, end: 20230310

REACTIONS (3)
  - Dry mouth [Recovered/Resolved with Sequelae]
  - Dental caries [Unknown]
  - Saliva altered [Unknown]

NARRATIVE: CASE EVENT DATE: 20221201
